FAERS Safety Report 14907642 (Version 1)
Quarter: 2018Q2

REPORT INFORMATION
  Report Type: Spontaneous
  Country: US (occurrence: US)
  Receive Date: 20180428
  Receipt Date: 20180428
  Transmission Date: 20180711
  Serious: Yes (Disabling)
  Sender: FDA-Public Use
  Company Number: None

PATIENT
  Age: 74 Year
  Sex: Male
  Weight: 79.2 kg

DRUGS (1)
  1. CIPROFLOXACIN HLC 500MG [Suspect]
     Active Substance: CIPROFLOXACIN HYDROCHLORIDE
     Indication: DIVERTICULITIS
     Dosage: ?          QUANTITY:20 TABLET(S);?
     Route: 048
     Dates: start: 20180412, end: 20180420

REACTIONS (5)
  - Abdominal pain upper [None]
  - Pain in extremity [None]
  - Pyrexia [None]
  - Diarrhoea [None]
  - Back pain [None]

NARRATIVE: CASE EVENT DATE: 20180413
